FAERS Safety Report 9956896 (Version 1)
Quarter: 2014Q1

REPORT INFORMATION
  Report Type: Report from Study
  Country: US (occurrence: US)
  Receive Date: 20140304
  Receipt Date: 20140304
  Transmission Date: 20141002
  Serious: No
  Sender: FDA-Public Use
  Company Number: US-ABBVIE-13P-163-1099344-00

PATIENT
  Age: 69 Year
  Sex: Female

DRUGS (19)
  1. HUMIRA [Suspect]
     Indication: RHEUMATOID ARTHRITIS
     Route: 058
     Dates: start: 20130417
  2. HYDROCODONE [Concomitant]
     Indication: RHEUMATOID ARTHRITIS
  3. HYDROCODONE [Concomitant]
     Indication: PAIN
  4. ZOLPIDEM [Concomitant]
     Indication: INSOMNIA
     Dosage: AT SLEEP
  5. LORATADINE [Concomitant]
     Indication: HYPERSENSITIVITY
     Dosage: 10MG DAILY
  6. ASA [Concomitant]
     Indication: PRODUCT USED FOR UNKNOWN INDICATION
     Dosage: 325MG DAILY
  7. FUROSEMIDE [Concomitant]
     Indication: HYPERTENSION
     Dosage: 40MG DAILY
  8. LIPITOR [Concomitant]
     Indication: BLOOD CHOLESTEROL INCREASED
     Dosage: 40MG DAILY
  9. LISINOPRIL [Concomitant]
     Indication: PRODUCT USED FOR UNKNOWN INDICATION
  10. AMLODIPINE [Concomitant]
     Indication: HYPERTENSION
     Dosage: 10MG DAILY
  11. NITROSTAT [Concomitant]
     Indication: CHEST PAIN
     Dosage: 0.4MG SL
  12. NOVOLOG [Concomitant]
     Indication: DIABETES MELLITUS
  13. LEFLUNOMIDE [Concomitant]
     Indication: DIABETES MELLITUS
  14. PREDNISONE [Concomitant]
     Indication: RHEUMATOID ARTHRITIS
     Dosage: 5MG DAILY
  15. METOPROLOL [Concomitant]
     Indication: HYPERTENSION
  16. CLOPIDOGREL [Concomitant]
     Indication: CORONARY ARTERY DISEASE
     Dosage: 75MG DAILY
     Route: 048
  17. PROVENTIL [Concomitant]
     Indication: ASTHMA
  18. SYMBICORT [Concomitant]
     Indication: ASTHMA
     Dosage: 80-4.5
  19. PANTOPRAZOLE [Concomitant]
     Indication: GASTROOESOPHAGEAL REFLUX DISEASE
     Dosage: 40MG DAILY

REACTIONS (5)
  - Injection site discolouration [Not Recovered/Not Resolved]
  - Injection site swelling [Not Recovered/Not Resolved]
  - Injection site erythema [Not Recovered/Not Resolved]
  - Oedema peripheral [Not Recovered/Not Resolved]
  - Pain in extremity [Not Recovered/Not Resolved]
